FAERS Safety Report 8367735-X (Version None)
Quarter: 2012Q2

REPORT INFORMATION
  Report Type: 
  Country: None (occurrence: None)
  Receive Date: 20120517
  Receipt Date: 20120510
  Transmission Date: 20120825
  Serious: Yes (Death, Hospitalization, Other)
  Sender: FDA-Public Use
  Company Number: US-GLAXOSMITHKLINE-A0977716A

PATIENT
  Age: 74 Year
  Sex: Male

DRUGS (28)
  1. ZOMETA [Concomitant]
     Indication: BONE DISORDER
     Route: 042
     Dates: start: 20100824
  2. ACETAMINOPHEN [Concomitant]
     Indication: CHEST PAIN
     Dosage: 500MG AS REQUIRED
     Route: 048
     Dates: start: 20100901
  3. COLCHICINE [Concomitant]
     Indication: GOUT
     Route: 048
  4. DARBEPOETIN ALFA [Concomitant]
     Indication: ANAEMIA
     Dosage: 300UG AS REQUIRED
     Route: 058
     Dates: start: 20101207
  5. METOPROLOL [Concomitant]
     Indication: HYPERTENSION
     Dosage: 50MG THREE TIMES PER DAY
     Route: 048
     Dates: start: 20060101, end: 20110207
  6. MELPHALAN HYDROCHLORIDE [Suspect]
     Indication: MULTIPLE MYELOMA
     Dates: start: 20100824, end: 20111021
  7. GLIPIZIDE [Concomitant]
     Indication: DIABETES MELLITUS
     Dosage: 10MG PER DAY
     Route: 048
     Dates: start: 20110527
  8. THALIDOMIDE [Suspect]
     Indication: MULTIPLE MYELOMA
     Dosage: 200MG PER DAY
     Route: 048
     Dates: start: 20100824
  9. FUROSEMIDE [Concomitant]
     Dates: start: 20060101, end: 20100101
  10. METFORMIN HCL [Concomitant]
     Indication: DIABETES MELLITUS
     Dosage: 1000MG TWICE PER DAY
     Route: 048
     Dates: start: 20060101, end: 20110526
  11. GABAPENTIN [Concomitant]
     Indication: DIABETIC NEUROPATHY
     Route: 048
     Dates: start: 20110722, end: 20111009
  12. ACYCLOVIR [Concomitant]
     Dosage: 200MG PER DAY
     Route: 048
     Dates: start: 20110413
  13. PREDNISONE TAB [Suspect]
     Indication: MULTIPLE MYELOMA
     Dates: start: 20100824
  14. LISINOPRIL [Concomitant]
     Indication: HYPERTENSION
     Dosage: 10MG PER DAY
     Route: 048
     Dates: start: 20060101
  15. VICODIN [Concomitant]
     Indication: BACK PAIN
     Route: 048
     Dates: start: 20100907
  16. MIRALAX [Concomitant]
     Indication: CONSTIPATION
     Route: 048
     Dates: start: 20100907
  17. DOCUSATE SODIUM [Concomitant]
     Indication: CONSTIPATION
     Dosage: 100MG AS REQUIRED
     Route: 048
     Dates: start: 20100907
  18. CALCIUM CARBONATE [Concomitant]
     Indication: HYPOCALCAEMIA
     Route: 048
  19. ATIVAN [Concomitant]
     Indication: NAUSEA
     Dosage: .5MG AS REQUIRED
     Route: 048
     Dates: start: 20101209, end: 20101214
  20. MEDROL [Concomitant]
     Indication: GOUT
     Route: 048
     Dates: start: 20110512, end: 20110515
  21. BENFOTIAMINE [Concomitant]
     Indication: DIABETIC NEUROPATHY
     Dosage: 150MG TWICE PER DAY
     Route: 048
     Dates: start: 20111007, end: 20111204
  22. PREGABALIN [Concomitant]
     Indication: NEUROPATHY PERIPHERAL
     Dosage: 50MG TWICE PER DAY
     Route: 048
     Dates: start: 20111205, end: 20111215
  23. WARFARIN SODIUM [Concomitant]
     Route: 048
     Dates: start: 20070508, end: 20120202
  24. POTASSIUM CHLORIDE [Concomitant]
     Indication: PROPHYLAXIS
     Route: 048
     Dates: start: 20060101, end: 20110713
  25. CALCIUM CARBONATE [Concomitant]
     Indication: HYPOCALCAEMIA
     Dosage: 1250MG THREE TIMES PER DAY
     Route: 048
     Dates: start: 20101208
  26. PROCHLORPERAZINE [Concomitant]
     Indication: NAUSEA
     Dosage: 10MG AS REQUIRED
     Route: 048
     Dates: start: 20101207, end: 20101214
  27. CIPROFLOXACIN [Concomitant]
     Indication: INFECTION
     Dosage: 500MG TWICE PER DAY
     Route: 048
     Dates: start: 20111001, end: 20111005
  28. GLYBURIDE [Concomitant]
     Dates: start: 20080227, end: 20110101

REACTIONS (4)
  - ANAEMIA [None]
  - EPISTAXIS [None]
  - THROMBOCYTOPENIA [None]
  - MYELODYSPLASTIC SYNDROME [None]
